FAERS Safety Report 16780093 (Version 1)
Quarter: 2019Q4

REPORT INFORMATION
  Report Type: Spontaneous
  Country: US (occurrence: US)
  Receive Date: 20190906
  Receipt Date: 20190906
  Transmission Date: 20200122
  Serious: Yes (Disabling)
  Sender: FDA-Public Use
  Company Number: None

PATIENT
  Age: 28 Year
  Sex: Female
  Weight: 47.25 kg

DRUGS (1)
  1. NORETHINDRONE ACETATE AND ETHINYL ESTRADIOL [Suspect]
     Active Substance: ETHINYL ESTRADIOL\NORETHINDRONE ACETATE
     Indication: ORAL CONTRACEPTION
     Dosage: ?          QUANTITY:1 TABLET(S);?
     Route: 048
     Dates: start: 20170918, end: 20190813

REACTIONS (9)
  - Disturbance in attention [None]
  - Vulvovaginal dryness [None]
  - Vulvovaginal pain [None]
  - Libido decreased [None]
  - Memory impairment [None]
  - Gastrointestinal disorder [None]
  - Product substitution issue [None]
  - Social anxiety disorder [None]
  - Cognitive disorder [None]

NARRATIVE: CASE EVENT DATE: 20190801
